FAERS Safety Report 10077741 (Version 2)
Quarter: 2014Q2

REPORT INFORMATION
  Report Type: Spontaneous
  Country: BR (occurrence: BR)
  Receive Date: 20140414
  Receipt Date: 20140611
  Transmission Date: 20141212
  Serious: Yes (Death, Hospitalization, Other)
  Sender: FDA-Public Use
  Company Number: BR-ABBVIE-14P-020-1225637-00

PATIENT
  Age: 48 Year
  Sex: Male
  Weight: 150 kg

DRUGS (1)
  1. HUMIRA [Suspect]
     Indication: PSORIASIS
     Route: 058
     Dates: start: 201303, end: 201312

REACTIONS (6)
  - Procedural complication [Unknown]
  - Nosocomial infection [Fatal]
  - Obesity surgery [Unknown]
  - Weight increased [Unknown]
  - Rhabdomyolysis [Unknown]
  - Renal failure [Unknown]
